FAERS Safety Report 5754855-9 (Version None)
Quarter: 2008Q2

REPORT INFORMATION
  Report Type: 
  Country: None (occurrence: None)
  Receive Date: 20080527
  Receipt Date: 20080507
  Transmission Date: 20081010
  Serious: Yes (Hospitalization)
  Sender: FDA-Public Use
  Company Number: DSA_31597_2008

PATIENT
  Sex: Female

DRUGS (15)
  1. CARDIZEM [Suspect]
     Indication: DRUG USE FOR UNKNOWN INDICATION
     Dosage: (DF)
  2. LYRICA [Suspect]
     Indication: HERPES ZOSTER
     Dosage: (75 MG), (75 MG), (75 MG)
     Dates: start: 20051101, end: 20080111
  3. LYRICA [Suspect]
     Indication: POST HERPETIC NEURALGIA
     Dosage: (75 MG), (75 MG), (75 MG)
     Dates: start: 20051101, end: 20080111
  4. LYRICA [Suspect]
     Indication: HERPES ZOSTER
     Dosage: (75 MG), (75 MG), (75 MG)
     Dates: start: 20050115, end: 20080319
  5. LYRICA [Suspect]
     Indication: POST HERPETIC NEURALGIA
     Dosage: (75 MG), (75 MG), (75 MG)
     Dates: start: 20050115, end: 20080319
  6. LYRICA [Suspect]
     Indication: HERPES ZOSTER
     Dosage: (75 MG), (75 MG), (75 MG)
     Dates: start: 20080320
  7. LYRICA [Suspect]
     Indication: POST HERPETIC NEURALGIA
     Dosage: (75 MG), (75 MG), (75 MG)
     Dates: start: 20080320
  8. GLUCOPHAGE [Concomitant]
  9. TYLENOL (CAPLET) [Concomitant]
  10. LASIX [Concomitant]
  11. K-DUR [Concomitant]
  12. PLAVIX [Concomitant]
  13. VITAMINS /90003601/ [Concomitant]
  14. STOOL SOFTENER () [Concomitant]
  15. UNKNOWN MEDICINE FOR GAS () [Concomitant]

REACTIONS (14)
  - ABDOMINAL PAIN UPPER [None]
  - ABNORMAL BEHAVIOUR [None]
  - BLOOD PRESSURE FLUCTUATION [None]
  - CLUSTER HEADACHE [None]
  - DRUG INEFFECTIVE [None]
  - HALLUCINATION [None]
  - INCOHERENT [None]
  - MALAISE [None]
  - NAUSEA [None]
  - NIGHTMARE [None]
  - OEDEMA PERIPHERAL [None]
  - TREMOR [None]
  - UNEVALUABLE EVENT [None]
  - VISION BLURRED [None]
